FAERS Safety Report 8993893 (Version 1)
Quarter: 2013Q1

REPORT INFORMATION
  Report Type: Spontaneous
  Country: US (occurrence: US)
  Receive Date: 20130102
  Receipt Date: 20130102
  Transmission Date: 20140127
  Serious: No
  Sender: FDA-Public Use
  Company Number: US-AMGEN-USASP2012078380

PATIENT
  Age: 14 Year
  Sex: Female

DRUGS (1)
  1. ENBREL [Suspect]
     Indication: TUMOUR NECROSIS FACTOR RECEPTOR-ASSOCIATED PERIODIC SYNDROME
     Dosage: 25 MG, 2 TIMES/WK
     Dates: start: 20121130

REACTIONS (10)
  - Injection site pain [Not Recovered/Not Resolved]
  - Migraine [Recovered/Resolved]
  - Injection site erythema [Not Recovered/Not Resolved]
  - Injection site reaction [Not Recovered/Not Resolved]
  - Nasopharyngitis [Not Recovered/Not Resolved]
  - Pyrexia [Not Recovered/Not Resolved]
  - Pain [Not Recovered/Not Resolved]
  - Chills [Not Recovered/Not Resolved]
  - Night sweats [Not Recovered/Not Resolved]
  - Feeling of body temperature change [Not Recovered/Not Resolved]
